FAERS Safety Report 7550805-3 (Version None)
Quarter: 2011Q2

REPORT INFORMATION
  Report Type: 
  Country: None (occurrence: None)
  Receive Date: 20110616
  Receipt Date: 20110603
  Transmission Date: 20111010
  Serious: No
  Sender: FDA-Public Use
  Company Number: US-JNJFOC-20110602229

PATIENT
  Sex: Male

DRUGS (5)
  1. INVEGA SUSTENNA [Suspect]
     Indication: SCHIZOAFFECTIVE DISORDER
     Route: 030
  2. COGENTIN [Concomitant]
     Route: 065
  3. DOXEPIN [Concomitant]
     Route: 065
  4. THORAZINE [Concomitant]
     Route: 065
  5. SEROQUEL [Concomitant]
     Indication: DEPRESSION
     Route: 065

REACTIONS (3)
  - THERAPEUTIC RESPONSE DECREASED [None]
  - DEPRESSION [None]
  - DRUG DEPENDENCE [None]
